FAERS Safety Report 7035650-X (Version None)
Quarter: 2010Q4

REPORT INFORMATION
  Report Type: 
  Country: None (occurrence: None)
  Receive Date: 20101008
  Receipt Date: 20100927
  Transmission Date: 20110411
  Serious: Yes (Disabling)
  Sender: FDA-Public Use
  Company Number: CA-MERCK-1009USA05186

PATIENT
  Age: 45 Year
  Sex: Male
  Weight: 104 kg

DRUGS (3)
  1. HYZAAR [Suspect]
     Route: 048
  2. CRESTOR [Concomitant]
     Route: 048
  3. CONIUM MACULATUM [Concomitant]
     Route: 048

REACTIONS (9)
  - DIZZINESS [None]
  - HEADACHE [None]
  - INNER EAR DISORDER [None]
  - INTERVERTEBRAL DISC DEGENERATION [None]
  - JOINT DISLOCATION [None]
  - LOSS OF CONSCIOUSNESS [None]
  - PRESYNCOPE [None]
  - ROTATOR CUFF SYNDROME [None]
  - VERTIGO [None]
